FAERS Safety Report 4283761-4 (Version None)
Quarter: 2004Q1

REPORT INFORMATION
  Report Type: 
  Country: None (occurrence: None)
  Receive Date: 20040130
  Receipt Date: 20040130
  Transmission Date: 20041129
  Serious: Yes (Hospitalization)
  Sender: FDA-Public Use
  Company Number: None

PATIENT
  Sex: Female
  Weight: 62.1 kg

DRUGS (9)
  1. TAXOTERE [Suspect]
     Indication: BREAST CANCER
     Dosage: 43 MG Q WEEK IV
     Route: 042
     Dates: start: 20031203, end: 20040106
  2. HIRUDIN [Suspect]
     Indication: BREAST CANCER
     Dosage: 36 MG Q 12 HRS SQ
     Route: 058
     Dates: start: 20031012, end: 20040113
  3. TOPROL-XL [Concomitant]
  4. KLONIPIN [Concomitant]
  5. AZITHROMYCIN [Concomitant]
  6. SEPTRA [Concomitant]
  7. PREDNISONE [Concomitant]
  8. CELEXA [Concomitant]
  9. PROTONIX [Concomitant]

REACTIONS (1)
  - PNEUMONIA [None]
